FAERS Safety Report 20590034 (Version 1)
Quarter: 2022Q1

REPORT INFORMATION
  Report Type: Spontaneous
  Country: US (occurrence: US)
  Receive Date: 20220314
  Receipt Date: 20220314
  Transmission Date: 20220424
  Serious: Yes (Hospitalization)
  Sender: FDA-Public Use
  Company Number: US-GW PHARMA-202203USGW01220

PATIENT
  Age: 3 Year
  Sex: Female
  Weight: 14.512 kg

DRUGS (1)
  1. EPIDIOLEX [Suspect]
     Active Substance: CANNABIDIOL
     Indication: Epilepsy
     Dosage: 34.45 MG/KG/DAY, 250 MILLIGRAM, BID
     Route: 048
     Dates: start: 20210127

REACTIONS (2)
  - Seizure [Recovered/Resolved]
  - Prescribed overdose [Unknown]

NARRATIVE: CASE EVENT DATE: 20211014
